FAERS Safety Report 9956277 (Version 1)
Quarter: 2014Q1

REPORT INFORMATION
  Report Type: Report from Study
  Country: US (occurrence: US)
  Receive Date: 20140304
  Receipt Date: 20140304
  Transmission Date: 20141002
  Serious: No
  Sender: FDA-Public Use
  Company Number: US-ABBVIE-13P-163-1085375-00

PATIENT
  Age: 54 Year
  Sex: Male

DRUGS (4)
  1. HUMIRA [Suspect]
     Indication: CROHN^S DISEASE
     Dates: start: 20130117, end: 20130306
  2. HUMIRA [Suspect]
     Dates: start: 20130306
  3. 6-MP [Concomitant]
     Indication: PRODUCT USED FOR UNKNOWN INDICATION
     Dosage: 75 MG PER DAY
     Dates: end: 20130306
  4. 6-MP [Concomitant]
     Dosage: 125 MG PER DAY
     Dates: start: 20130306

REACTIONS (1)
  - Crohn^s disease [Recovering/Resolving]
